FAERS Safety Report 9109611 (Version 1)
Quarter: 2013Q1

REPORT INFORMATION
  Report Type: Spontaneous
  Country: US (occurrence: US)
  Receive Date: 20130222
  Receipt Date: 20130222
  Transmission Date: 20140127
  Serious: Yes (Other)
  Sender: FDA-Public Use
  Company Number: US-JNJFOC-20130207670

PATIENT
  Sex: Female
  Weight: 117.94 kg

DRUGS (10)
  1. XARELTO [Suspect]
     Indication: CEREBROVASCULAR ACCIDENT PROPHYLAXIS
     Route: 048
     Dates: start: 201212
  2. XARELTO [Suspect]
     Indication: CEREBROVASCULAR ACCIDENT PROPHYLAXIS
     Route: 048
     Dates: start: 201211, end: 201212
  3. XARELTO [Suspect]
     Indication: ATRIAL FIBRILLATION
     Route: 048
     Dates: start: 201212
  4. XARELTO [Suspect]
     Indication: ATRIAL FIBRILLATION
     Route: 048
     Dates: start: 201211, end: 201212
  5. VERAPAMIL [Concomitant]
     Indication: BLOOD DISORDER
     Route: 048
  6. LEVOTHYROXINE [Concomitant]
     Dosage: 50MCG ONCE A DAY
     Route: 048
  7. LOSARTAN [Concomitant]
     Dosage: 50MCG ONCE A DAY
     Route: 048
  8. FUROSEMIDE [Concomitant]
     Indication: DIURETIC THERAPY
     Dosage: 50MCG ONCE A DAY
     Route: 048
  9. ISOSORBIDE [Concomitant]
     Dosage: 50MCG ONCE A DAY
     Route: 048
  10. UNSPECIFIED EYE MEDICATION [Concomitant]
     Indication: CATARACT
     Dosage: 50MCG ONCE A DAY
     Route: 047

REACTIONS (3)
  - Haematemesis [Not Recovered/Not Resolved]
  - Bronchitis [Not Recovered/Not Resolved]
  - Incorrect dose administered [Recovered/Resolved]
